FAERS Safety Report 11876686 (Version 2)
Quarter: 2016Q1

REPORT INFORMATION
  Report Type: Report from Study
  Country: NO (occurrence: NO)
  Receive Date: 20151229
  Receipt Date: 20160223
  Transmission Date: 20160526
  Serious: Yes (Life-Threatening, Hospitalization)
  Sender: FDA-Public Use
  Company Number: NO-CELGENE-NOR-2015124105

PATIENT
  Sex: Male

DRUGS (4)
  1. REVLIMID [Suspect]
     Active Substance: LENALIDOMIDE
     Indication: PRODUCT USED FOR UNKNOWN INDICATION
     Dosage: 15 MILLIGRAM
     Route: 048
     Dates: start: 20150825, end: 20151019
  2. BUSULFAN [Suspect]
     Active Substance: BUSULFAN
     Indication: PRODUCT USED FOR UNKNOWN INDICATION
     Route: 065
     Dates: start: 20151120, end: 20151123
  3. GENTAMICIN. [Concomitant]
     Active Substance: GENTAMICIN
     Indication: CYTOMEGALOVIRUS INFECTION
     Route: 065
     Dates: start: 20151201, end: 20151204
  4. CYCLOPHOSPHAMIDE. [Suspect]
     Active Substance: CYCLOPHOSPHAMIDE
     Indication: PRODUCT USED FOR UNKNOWN INDICATION
     Dosage: 220 MILLIGRAM
     Route: 065
     Dates: start: 20151124, end: 20151125

REACTIONS (3)
  - Cytomegalovirus infection [Not Recovered/Not Resolved]
  - Blood disorder [Not Recovered/Not Resolved]
  - Lymphatic disorder [Not Recovered/Not Resolved]

NARRATIVE: CASE EVENT DATE: 20151201
